FAERS Safety Report 23659639 (Version 1)
Quarter: 2024Q1

REPORT INFORMATION
  Report Type: Spontaneous
  Country: ES (occurrence: ES)
  Receive Date: 20240321
  Receipt Date: 20240321
  Transmission Date: 20240410
  Serious: Yes (Other)
  Sender: FDA-Public Use
  Company Number: None

PATIENT
  Age: 24 Year
  Sex: Female
  Weight: 67 kg

DRUGS (1)
  1. AJOVY [Suspect]
     Active Substance: FREMANEZUMAB-VFRM
     Indication: Migraine
     Dosage: 225MG EVERY MONTH, 1 PRE-FILLED PEN
     Route: 058
     Dates: start: 20231127

REACTIONS (1)
  - Transient global amnesia [Not Recovered/Not Resolved]

NARRATIVE: CASE EVENT DATE: 20231130
